FAERS Safety Report 25979745 (Version 1)
Quarter: 2025Q4

REPORT INFORMATION
  Report Type: Spontaneous
  Country: US (occurrence: US)
  Receive Date: 20251030
  Receipt Date: 20251030
  Transmission Date: 20260118
  Serious: No
  Sender: TEVA
  Company Number: US-TEVA-VS-3383606

PATIENT
  Sex: Male

DRUGS (1)
  1. NIACIN [Suspect]
     Active Substance: NIACIN
     Indication: Blood cholesterol
     Route: 065

REACTIONS (2)
  - Flushing [Unknown]
  - Feeling hot [Unknown]
